FAERS Safety Report 4298524-3 (Version None)
Quarter: 2004Q1

REPORT INFORMATION
  Report Type: 
  Country: None (occurrence: None)
  Receive Date: 20040126
  Receipt Date: 20031023
  Transmission Date: 20041129
  Serious: No
  Sender: FDA-Public Use
  Company Number: USA031050712

PATIENT
  Age: 25 Year
  Sex: Male
  Weight: 64 kg

DRUGS (7)
  1. STRATTERA [Suspect]
     Indication: ATTENTION DEFICIT/HYPERACTIVITY DISORDER
     Dosage: 20 MG/DAY
     Dates: start: 20030901
  2. ADVAIR DISKUS 100/50 [Concomitant]
  3. ZYRTEC-D 12 HOUR [Concomitant]
  4. RHINOCORT [Concomitant]
  5. ATROVENT [Concomitant]
  6. SINGULAIR [Concomitant]
  7. COMBIVENT [Concomitant]

REACTIONS (4)
  - DEHYDRATION [None]
  - DYSPNOEA [None]
  - DYSURIA [None]
  - FATIGUE [None]
